FAERS Safety Report 17979767 (Version 1)
Quarter: 2020Q3

REPORT INFORMATION
  Report Type: Report from Study
  Country: CA (occurrence: CA)
  Receive Date: 20200703
  Receipt Date: 20200703
  Transmission Date: 20201103
  Serious: Yes (Other)
  Sender: FDA-Public Use
  Company Number: CA-BAUSCH-BL-2020-018235

PATIENT
  Sex: Female

DRUGS (3)
  1. SALBUTAMOL SULFATE [Suspect]
     Active Substance: ALBUTEROL SULFATE
     Indication: PRODUCT USED FOR UNKNOWN INDICATION
     Route: 065
  2. QVAR [Suspect]
     Active Substance: BECLOMETHASONE DIPROPIONATE
     Indication: PRODUCT USED FOR UNKNOWN INDICATION
     Dosage: DOSAGE FORM: INHALATION
     Route: 065
  3. NUCALA [Suspect]
     Active Substance: MEPOLIZUMAB
     Indication: ASTHMA
     Route: 058

REACTIONS (20)
  - Rhinitis allergic [Recovered/Resolved]
  - Cough [Recovered/Resolved]
  - Chills [Recovered/Resolved]
  - Pneumonia [Recovered/Resolved]
  - Bronchiectasis [Recovered/Resolved]
  - Bronchitis [Recovered/Resolved]
  - Bronchopulmonary aspergillosis allergic [Recovered/Resolved]
  - Blood immunoglobulin E increased [Recovered/Resolved]
  - Bronchial secretion retention [Recovered/Resolved]
  - Lymph node calcification [Recovered/Resolved]
  - Pyrexia [Recovered/Resolved]
  - Productive cough [Recovered/Resolved]
  - Bacterial infection [Recovered/Resolved]
  - Viral infection [Recovered/Resolved]
  - Eosinophil count increased [Recovered/Resolved]
  - Sputum discoloured [Recovered/Resolved]
  - Pain in extremity [Recovered/Resolved]
  - Asthma [Recovered/Resolved]
  - Influenza [Recovered/Resolved]
  - Malaise [Recovered/Resolved]
